FAERS Safety Report 9867899 (Version 2)
Quarter: 2014Q1

REPORT INFORMATION
  Report Type: Report from Study
  Country: FR (occurrence: FR)
  Receive Date: 20140204
  Receipt Date: 20140204
  Transmission Date: 20141002
  Serious: Yes (Hospitalization)
  Sender: FDA-Public Use
  Company Number: FR-SANOFI-AVENTIS-2012SA008228

PATIENT
  Age: 26 Year
  Sex: Female
  Weight: 41 kg

DRUGS (4)
  1. TERIFLUNOMIDE [Suspect]
     Indication: MULTIPLE SCLEROSIS
     Route: 048
     Dates: start: 20110324, end: 20120203
  2. ADEPAL [Concomitant]
  3. DAFALGAN [Concomitant]
  4. ACTISKENAN [Concomitant]

REACTIONS (1)
  - Genital infection [Recovered/Resolved]
